FAERS Safety Report 5977706-6 (Version None)
Quarter: 2008Q4

REPORT INFORMATION
  Report Type: 
  Country: None (occurrence: None)
  Receive Date: 20081203
  Receipt Date: 20081126
  Transmission Date: 20090506
  Serious: Yes (Hospitalization)
  Sender: FDA-Public Use
  Company Number: FR-ROCHE-599892

PATIENT
  Sex: Male

DRUGS (18)
  1. VESANOID [Suspect]
     Route: 048
     Dates: start: 20060325, end: 20060426
  2. VESANOID [Suspect]
     Dosage: FREQUENCY:PER DAY,END OF TREATMENT (PLANNED ON JUNE 2008)
     Route: 048
     Dates: start: 20060816
  3. CERUBIDINE [Concomitant]
     Dosage: DOSAGE FORM REPORTED AS:INJECTABLE SOLUTION,120 MG
     Route: 042
     Dates: start: 20060327, end: 20060329
  4. CERUBIDINE [Concomitant]
     Dosage: DOSAGE FORM REPORTED AS:INJECTABLE SOLUTION,FREQUENCY: FROM DAY1 TO DAY3
     Route: 042
     Dates: start: 20060503, end: 20060526
  5. CERUBIDINE [Concomitant]
     Dosage: CONSOLIDATION TREATMENT N2
     Route: 042
     Dates: start: 20060616, end: 20060626
  6. CYTARABINE [Concomitant]
     Dosage: DOSAGE FORM REPORTED AS:INJECTABLE SOLUTION
     Route: 042
     Dates: start: 20060327, end: 20060402
  7. CYTARABINE [Concomitant]
     Dosage: DOSAGE FORM REPORTED AS:INJECTABLE SOLUTION,DOSING AMOUNT 400 MG FROM DAY1 TO DAY 7
     Route: 042
     Dates: start: 20060503, end: 20060526
  8. CYTARABINE [Concomitant]
     Dosage: CONSOLIDATION TREATMENT N2
     Route: 042
     Dates: start: 20060616, end: 20060626
  9. PURINETHOL [Concomitant]
     Dosage: FREQUENCY:PER DAY
     Dates: start: 20060816
  10. PURINETHOL [Concomitant]
     Dosage: FREQUENCY:PER DAY.DECREASE OF THE DOSAGES
  11. METHOTREXATE [Concomitant]
     Dosage: FREQUENCY:30MG/DAY 1 DAY/WEEK
     Dates: start: 20060816
  12. METHOTREXATE [Concomitant]
     Dosage: DECREASE OF THE DOSAGES
  13. COTRIMOXAZOLE [Concomitant]
     Dosage: FREQUENCY:1 TABLET ON MONDAY, WEDNESDAY, FRIDAY
     Dates: start: 20060816, end: 20061120
  14. PENTAMIDINE ISETHIONATE [Concomitant]
     Dates: start: 20061120
  15. HEPARIN [Concomitant]
     Dosage: FREQUENCY:PER DAY,DRUG REPORTED:HEPARIN(NADROPARINE CALCIQUE=FRAXODI)
     Dates: start: 20060412
  16. WARFARIN SODIUM [Concomitant]
  17. BISOPROLOL FUMARATE [Concomitant]
  18. ELISOR [Concomitant]

REACTIONS (2)
  - PHLEBITIS [None]
  - PULMONARY EMBOLISM [None]
